FAERS Safety Report 25851765 (Version 1)
Quarter: 2025Q3

REPORT INFORMATION
  Report Type: Spontaneous
  Country: US (occurrence: US)
  Receive Date: 20250926
  Receipt Date: 20250926
  Transmission Date: 20251021
  Serious: Yes (Hospitalization)
  Sender: STRIDES
  Company Number: US-STRIDES ARCOLAB LIMITED-2025SP000368

PATIENT
  Age: 78 Year
  Sex: Male

DRUGS (9)
  1. PREDNISOLONE [Suspect]
     Active Substance: PREDNISOLONE
     Indication: Myasthenia gravis
     Route: 065
  2. HUMAN IMMUNOGLOBULIN G [Suspect]
     Active Substance: HUMAN IMMUNOGLOBULIN G
     Indication: Myasthenia gravis
     Route: 042
  3. HUMAN IMMUNOGLOBULIN G [Suspect]
     Active Substance: HUMAN IMMUNOGLOBULIN G
     Route: 042
  4. METHYLPREDNISOLONE [Suspect]
     Active Substance: METHYLPREDNISOLONE
     Indication: Myasthenia gravis
     Route: 042
  5. VISMODEGIB [Concomitant]
     Active Substance: VISMODEGIB
     Indication: Basal cell carcinoma
     Route: 065
  6. CEMIPLIMAB [Concomitant]
     Active Substance: CEMIPLIMAB
     Indication: Metastases to spine
     Route: 065
     Dates: start: 2023
  7. CEMIPLIMAB [Concomitant]
     Active Substance: CEMIPLIMAB
     Indication: Metastases to lymph nodes
     Route: 065
     Dates: start: 2023
  8. CEMIPLIMAB [Concomitant]
     Active Substance: CEMIPLIMAB
     Indication: Basal cell carcinoma metastatic
  9. MESTINON [Concomitant]
     Active Substance: PYRIDOSTIGMINE BROMIDE
     Indication: Myasthenia gravis
     Route: 065

REACTIONS (1)
  - Drug ineffective [Unknown]
